FAERS Safety Report 10305423 (Version 2)
Quarter: 2014Q3

REPORT INFORMATION
  Report Type: Other
  Country: US (occurrence: US)
  Receive Date: 20140715
  Receipt Date: 20140715
  Transmission Date: 20150326
  Serious: Yes (Death, Hospitalization, Other)
  Sender: FDA-Public Use
  Company Number: US-GSKPPD-2014GSK000569

PATIENT
  Age: 46 Year
  Sex: Female

DRUGS (4)
  1. AVANDIA [Suspect]
     Active Substance: ROSIGLITAZONE MALEATE
     Indication: DIABETES MELLITUS
     Route: 048
     Dates: start: 20050120, end: 2009
  2. LASIX [Concomitant]
     Active Substance: FUROSEMIDE
     Route: 048
  3. SPIROLACTONE [Concomitant]
     Active Substance: SPIRONOLACTONE
     Route: 048
  4. DIGOXIN. [Concomitant]
     Active Substance: DIGOXIN
     Route: 048

REACTIONS (2)
  - Cardiac failure congestive [None]
  - Cardiopulmonary failure [Fatal]

NARRATIVE: CASE EVENT DATE: 20110208
